FAERS Safety Report 15008783 (Version 2)
Quarter: 2018Q3

REPORT INFORMATION
  Report Type: Report from Study
  Country: JP (occurrence: JP)
  Receive Date: 20180613
  Receipt Date: 20180903
  Transmission Date: 20181010
  Serious: Yes (Other)
  Sender: FDA-Public Use
  Company Number: JP-BEH-2018091527

PATIENT
  Age: 87 Year
  Sex: Male
  Weight: 53 kg

DRUGS (16)
  1. WARFARIN [Concomitant]
     Active Substance: WARFARIN
     Indication: ATRIAL FIBRILLATION
     Dosage: 3 MG, UNK
     Route: 048
     Dates: end: 20180407
  2. ADONA                              /00056903/ [Concomitant]
     Active Substance: CARBAZOCHROME SODIUM SULFONATE
     Indication: HAEMORRHAGE
     Dosage: UNK
     Route: 065
     Dates: start: 20180407, end: 20180407
  3. NEXIUM [Concomitant]
     Active Substance: ESOMEPRAZOLE MAGNESIUM
     Route: 048
  4. SUNRYTHM [Concomitant]
     Active Substance: PILSICAINIDE HYDROCHLORIDE
     Route: 048
  5. FERROMIA [Concomitant]
     Active Substance: SODIUM FERROUS CITRATE
     Route: 048
  6. BERIPLEX P/N [Suspect]
     Active Substance: COAGULATION FACTOR IX HUMAN\COAGULATION FACTOR VII HUMAN\COAGULATION FACTOR X HUMAN\PROTEIN C\PROTEIN S HUMAN\PROTHROMBIN
     Dosage: UNK
     Route: 042
  7. GLYCEOL                            /00744501/ [Concomitant]
     Active Substance: GLYCERIN
     Dosage: UNK
     Route: 065
     Dates: start: 20180407, end: 20180413
  8. BERIPLEX P/N [Suspect]
     Active Substance: COAGULATION FACTOR IX HUMAN\COAGULATION FACTOR VII HUMAN\COAGULATION FACTOR X HUMAN\PROTEIN C\PROTEIN S HUMAN\PROTHROMBIN
     Dosage: UNK
     Route: 042
  9. WARFARIN [Concomitant]
     Active Substance: WARFARIN
     Dosage: 2 MG, UNK
     Route: 048
     Dates: start: 20180417, end: 20180423
  10. TAMSULOSIN [Concomitant]
     Active Substance: TAMSULOSIN
     Route: 048
  11. ALPRAZOLAM. [Concomitant]
     Active Substance: ALPRAZOLAM
     Route: 048
  12. BERIPLEX P/N [Suspect]
     Active Substance: COAGULATION FACTOR IX HUMAN\COAGULATION FACTOR VII HUMAN\COAGULATION FACTOR X HUMAN\PROTEIN C\PROTEIN S HUMAN\PROTHROMBIN
     Indication: HAEMORRHAGE
     Dosage: 1325 IU, UNK
     Route: 042
     Dates: start: 20180407
  13. PRIMPERAN [Concomitant]
     Active Substance: METOCLOPRAMIDE HYDROCHLORIDE
     Dosage: UNK
     Route: 065
     Dates: start: 20180407, end: 20180412
  14. FAMOTIDINE. [Concomitant]
     Active Substance: FAMOTIDINE
     Dosage: UNK
     Route: 065
     Dates: start: 20180407, end: 20180412
  15. NICARDIPINE [Concomitant]
     Active Substance: NICARDIPINE
     Dosage: UNK
     Route: 065
     Dates: start: 20180407, end: 20180414
  16. TRANSAMIN [Concomitant]
     Active Substance: TRANEXAMIC ACID
     Indication: HAEMORRHAGE
     Dosage: UNK
     Route: 065
     Dates: start: 20180407, end: 20180407

REACTIONS (3)
  - Productive cough [Recovering/Resolving]
  - Pneumonia aspiration [Recovering/Resolving]
  - Pyrexia [Recovering/Resolving]

NARRATIVE: CASE EVENT DATE: 20180417
